FAERS Safety Report 26098992 (Version 1)
Quarter: 2025Q4

REPORT INFORMATION
  Report Type: Spontaneous
  Country: EU (occurrence: EU)
  Receive Date: 20251128
  Receipt Date: 20251128
  Transmission Date: 20260117
  Serious: Yes (Death)
  Sender: UCB
  Company Number: None

PATIENT
  Age: 62 Year
  Weight: 50 kg

DRUGS (10)
  1. LEVETIRACETAM [Suspect]
     Active Substance: LEVETIRACETAM
     Indication: Status epilepticus
     Dosage: 500 MG X2/J
  2. VALACYCLOVIR HYDROCHLORIDE [Suspect]
     Active Substance: VALACYCLOVIR HYDROCHLORIDE
     Indication: Rash vesicular
     Dosage: NR
  3. ACYCLOVIR [Suspect]
     Active Substance: ACYCLOVIR
     Indication: Rash vesicular
     Dosage: NR
  4. FLUCONAZOLE [Suspect]
     Active Substance: FLUCONAZOLE
     Indication: Systemic candida
     Dosage: NR
  5. CEFTRIAXONE SODIUM [Suspect]
     Active Substance: CEFTRIAXONE SODIUM
     Indication: Meningitis pneumococcal
     Dosage: NR
  6. CEFTRIAXONE SODIUM [Suspect]
     Active Substance: CEFTRIAXONE SODIUM
     Dosage: NR
  7. VANCOMYCIN [Suspect]
     Active Substance: VANCOMYCIN
     Indication: Meningitis pneumococcal
     Dosage: NR
  8. RIFAMPIN [Suspect]
     Active Substance: RIFAMPIN
     Indication: Meningitis pneumococcal
     Dosage: NR
  9. CEFOTAXIME SODIUM [Suspect]
     Active Substance: CEFOTAXIME SODIUM
     Indication: Meningitis pneumococcal
     Dosage: NR
  10. FOSFOMYCIN [Suspect]
     Active Substance: FOSFOMYCIN
     Indication: Meningitis pneumococcal
     Dosage: NR

REACTIONS (1)
  - Drug reaction with eosinophilia and systemic symptoms [Fatal]
